FAERS Safety Report 10379597 (Version 1)
Quarter: 2014Q3

REPORT INFORMATION
  Report Type: Spontaneous
  Country: CH (occurrence: CH)
  Receive Date: 20140812
  Receipt Date: 20140812
  Transmission Date: 20150326
  Serious: Yes (Hospitalization)
  Sender: FDA-Public Use
  Company Number: PHHY2014CH097420

PATIENT

DRUGS (1)
  1. GLIVEC [Suspect]
     Active Substance: IMATINIB MESYLATE
     Dosage: UNK UKN, UNK

REACTIONS (4)
  - Vagus nerve paralysis [Unknown]
  - Laryngeal oedema [Unknown]
  - Neuropathy peripheral [Unknown]
  - Laryngitis [Unknown]
